FAERS Safety Report 4835989-X (Version None)
Quarter: 2005Q4

REPORT INFORMATION
  Report Type: 
  Country: None (occurrence: None)
  Receive Date: 20051118
  Receipt Date: 20051102
  Transmission Date: 20060501
  Serious: Yes (Other)
  Sender: FDA-Public Use
  Company Number: DSA_27372_2005

PATIENT
  Age: 14 Year
  Sex: Male

DRUGS (3)
  1. ENALAPRIL MALEATE [Suspect]
     Dosage: 5 MG BID PO
     Route: 048
     Dates: start: 20050101
  2. LANICOR [Concomitant]
  3. VIANI MITE [Concomitant]

REACTIONS (3)
  - CARDIAC DISORDER [None]
  - CARDIAC OUTPUT DECREASED [None]
  - EJECTION FRACTION DECREASED [None]
